FAERS Safety Report 23724717 (Version 3)
Quarter: 2024Q2

REPORT INFORMATION
  Report Type: Spontaneous
  Country: JP (occurrence: JP)
  Receive Date: 20240409
  Receipt Date: 20240522
  Transmission Date: 20240716
  Serious: Yes (Other)
  Sender: FDA-Public Use
  Company Number: JP-DSPHARMA-2024SMP004630

PATIENT

DRUGS (6)
  1. LATUDA [Suspect]
     Active Substance: LURASIDONE HYDROCHLORIDE
     Indication: Bipolar II disorder
     Dosage: 20 MG, HS
     Route: 048
     Dates: start: 20240221, end: 20240309
  2. LATUDA [Suspect]
     Active Substance: LURASIDONE HYDROCHLORIDE
     Indication: Depressive symptom
  3. CLONAZEPAM [Suspect]
     Active Substance: CLONAZEPAM
     Indication: Akathisia
     Dosage: UNK
     Route: 048
  4. ETIZOLAM [Suspect]
     Active Substance: ETIZOLAM
     Indication: Anxiety
     Dosage: 1-4 TABLETS, 1-4 TIMES/DAY, AS NECESSARY
     Route: 048
  5. HALCION [Concomitant]
     Active Substance: TRIAZOLAM
     Indication: Insomnia
     Dosage: 0.5 MG, QD
     Route: 048
  6. BROTIZOLAM [Concomitant]
     Active Substance: BROTIZOLAM
     Indication: Insomnia
     Dosage: 0.5 MG, QD
     Route: 048

REACTIONS (9)
  - Akathisia [Recovering/Resolving]
  - Self-destructive behaviour [Unknown]
  - Suicidal ideation [Unknown]
  - Headache [Unknown]
  - Irritability [Recovered/Resolved]
  - Mania [Unknown]
  - Psychiatric symptom [Unknown]
  - Anger [Unknown]
  - Insomnia [Recovered/Resolved]

NARRATIVE: CASE EVENT DATE: 20240228
